FAERS Safety Report 10511287 (Version 2)
Quarter: 2014Q4

REPORT INFORMATION
  Report Type: Spontaneous
  Country: US (occurrence: US)
  Receive Date: 20141010
  Receipt Date: 20141015
  Transmission Date: 20150528
  Serious: Yes (Life-Threatening, Disabling)
  Sender: FDA-Public Use
  Company Number: US-009507513-1410USA002943

PATIENT
  Age: 52 Year
  Sex: Male

DRUGS (1)
  1. SYLATRON [Suspect]
     Active Substance: PEGINTERFERON ALFA-2B
     Indication: MALIGNANT MELANOMA
     Dosage: RECEIVED A LAGER DOSE THAN RECOMMENDED (EXACT AMOUNT UNKNOWN)
     Route: 058
     Dates: start: 20141001

REACTIONS (11)
  - Platelet count decreased [Recovered/Resolved]
  - White blood cell count decreased [Recovered/Resolved]
  - Lethargy [Recovered/Resolved]
  - Influenza like illness [Recovered/Resolved]
  - Headache [Recovered/Resolved]
  - Pyrexia [Recovered/Resolved]
  - Musculoskeletal stiffness [Recovered/Resolved]
  - Overdose [Unknown]
  - Pain in extremity [Recovered/Resolved]
  - Fatigue [Recovered/Resolved]
  - Neutropenia [Recovered/Resolved]

NARRATIVE: CASE EVENT DATE: 201410
